FAERS Safety Report 15190931 (Version 3)
Quarter: 2018Q3

REPORT INFORMATION
  Report Type: Report from Study
  Country: US (occurrence: US)
  Receive Date: 20180724
  Receipt Date: 20180817
  Transmission Date: 20181010
  Serious: Yes (Death, Hospitalization)
  Sender: FDA-Public Use
  Company Number: US-PUMA BIOTECHNOLOGY, LTD.-2018US003470

PATIENT

DRUGS (3)
  1. NERLYNX [Suspect]
     Active Substance: NERATINIB
     Indication: UTERINE CANCER
     Dosage: 240 (6 TABLETS) MG, DAILY
     Route: 048
     Dates: start: 20180405
  2. OXYCODONE [Concomitant]
     Active Substance: OXYCODONE
     Indication: PAIN
  3. LOMOTIL [Concomitant]
     Active Substance: ATROPINE SULFATE\DIPHENOXYLATE HYDROCHLORIDE
     Indication: DIARRHOEA

REACTIONS (8)
  - Abdominal discomfort [Not Recovered/Not Resolved]
  - Gastrooesophageal reflux disease [Not Recovered/Not Resolved]
  - Abdominal pain [Fatal]
  - Hospitalisation [Unknown]
  - Ascites [Fatal]
  - Pleural effusion [Fatal]
  - Uterine cancer [Unknown]
  - Off label use [Unknown]

NARRATIVE: CASE EVENT DATE: 20180430
